FAERS Safety Report 15575967 (Version 1)
Quarter: 2018Q4

REPORT INFORMATION
  Report Type: Spontaneous
  Country: US (occurrence: US)
  Receive Date: 20181101
  Receipt Date: 20181101
  Transmission Date: 20190205
  Serious: No
  Sender: FDA-Public Use
  Company Number: US-JIANGSU HENGRUI MEDICINE CO., LTD.-2058301

PATIENT
  Age: 19 Year
  Sex: Female

DRUGS (7)
  1. BLEOMYCIN [Concomitant]
     Active Substance: BLEOMYCIN SULFATE
  2. NIVOLUMAB [Concomitant]
     Active Substance: NIVOLUMAB
  3. DOXORUBICIN HYDROCHLORIDE. [Concomitant]
     Active Substance: DOXORUBICIN HYDROCHLORIDE
  4. CISPLATIN. [Concomitant]
     Active Substance: CISPLATIN
  5. CYCLOPHOSPHAMIDE. [Suspect]
     Active Substance: CYCLOPHOSPHAMIDE
     Indication: OVARIAN CANCER
  6. ETOPOSIDE. [Concomitant]
     Active Substance: ETOPOSIDE
  7. VINBLASTINE SULFATE. [Concomitant]
     Active Substance: VINBLASTINE SULFATE

REACTIONS (1)
  - Malaise [None]
